FAERS Safety Report 6599510-0 (Version None)
Quarter: 2010Q1

REPORT INFORMATION
  Report Type: 
  Country: None (occurrence: None)
  Receive Date: 20100212
  Receipt Date: 20090924
  Transmission Date: 20100710
  Serious: No
  Sender: FDA-Public Use
  Company Number: 2009-00623

PATIENT
  Age: 37 Year
  Sex: Female
  Weight: 90.7194 kg

DRUGS (1)
  1. ZICAM ALLERGY RELIEF GEL SWABS [Suspect]
     Dosage: QID - 1 DAY
     Dates: start: 20090921, end: 20090922

REACTIONS (1)
  - ANOSMIA [None]
